FAERS Safety Report 8431030-0 (Version None)
Quarter: 2012Q2

REPORT INFORMATION
  Report Type: 
  Country: None (occurrence: None)
  Receive Date: 20120612
  Receipt Date: 20120529
  Transmission Date: 20120825
  Serious: Yes (Other)
  Sender: FDA-Public Use
  Company Number: CA-ROCHE-1015204

PATIENT
  Sex: Female

DRUGS (1)
  1. XOLAIR [Suspect]
     Indication: ASTHMA
     Route: 058
     Dates: start: 20060104

REACTIONS (11)
  - FUNGAL INFECTION [None]
  - SWOLLEN TONGUE [None]
  - MIGRAINE [None]
  - PYREXIA [None]
  - ARTHRALGIA [None]
  - PHARYNGEAL OEDEMA [None]
  - OROPHARYNGEAL PAIN [None]
  - DYSPHAGIA [None]
  - COUGH [None]
  - HEADACHE [None]
  - VISION BLURRED [None]
